FAERS Safety Report 15062387 (Version 1)
Quarter: 2018Q2

REPORT INFORMATION
  Report Type: Spontaneous
  Country: US (occurrence: US)
  Receive Date: 20180625
  Receipt Date: 20180625
  Transmission Date: 20180711
  Serious: No
  Sender: FDA-Public Use
  Company Number: US-AMGEN-USASP2011015725

PATIENT
  Age: 66 Year
  Sex: Female

DRUGS (8)
  1. NEPHRO-VITE                        /01801401/ [Concomitant]
  2. AMOXICILLIN. [Concomitant]
     Active Substance: AMOXICILLIN
  3. PHOSLO [Concomitant]
     Active Substance: CALCIUM ACETATE
  4. COUMADIN [Concomitant]
     Active Substance: WARFARIN SODIUM
  5. SIMVASTATIN. [Concomitant]
     Active Substance: SIMVASTATIN
  6. SENSIPAR [Suspect]
     Active Substance: CINACALCET HYDROCHLORIDE
     Indication: HYPERPARATHYROIDISM SECONDARY
     Dosage: 30 MG, 2 TIMES/WK
     Dates: start: 200912
  7. MIDODRINE [Concomitant]
     Active Substance: MIDODRINE
  8. TIMOPTIC [Concomitant]
     Active Substance: TIMOLOL MALEATE

REACTIONS (3)
  - Nausea [Not Recovered/Not Resolved]
  - Retching [Unknown]
  - Productive cough [Unknown]

NARRATIVE: CASE EVENT DATE: 200912
